FAERS Safety Report 5796652-4 (Version None)
Quarter: 2008Q2

REPORT INFORMATION
  Report Type: 
  Country: None (occurrence: None)
  Receive Date: 20080627
  Receipt Date: 20080623
  Transmission Date: 20081010
  Serious: Yes (Other)
  Sender: FDA-Public Use
  Company Number: 2008SP012462

PATIENT
  Age: 42 Year
  Sex: Female

DRUGS (3)
  1. RIBAVIRIN [Suspect]
     Indication: HEPATITIS C
     Dosage: PO
     Route: 048
     Dates: start: 20040101
  2. RIBAVIRIN [Suspect]
     Indication: HEPATITIS C
     Dosage: PO
     Route: 048
     Dates: start: 20080509
  3. PEGASYS [Suspect]
     Indication: HEPATITIS C
     Dates: start: 20040101, end: 20040101

REACTIONS (1)
  - TRANSIENT ISCHAEMIC ATTACK [None]
